FAERS Safety Report 5234604-3 (Version None)
Quarter: 2007Q1

REPORT INFORMATION
  Report Type: 
  Country: None (occurrence: None)
  Receive Date: 20070209
  Receipt Date: 20070206
  Transmission Date: 20070707
  Serious: Yes (Other)
  Sender: FDA-Public Use
  Company Number: BR-JNJFOC-20070107394

PATIENT
  Sex: Male
  Weight: 65 kg

DRUGS (12)
  1. BLINDED; TMC125 [Suspect]
     Indication: HIV INFECTION
     Route: 048
  2. PLACEBO [Suspect]
     Indication: HIV INFECTION
     Route: 048
  3. TMC114 [Suspect]
     Route: 048
  4. TMC114 [Suspect]
     Indication: HIV INFECTION
     Route: 048
  5. RITONAVIR [Suspect]
     Indication: HIV INFECTION
     Route: 048
  6. GABAPENTIN [Suspect]
     Indication: DRUG USE FOR UNKNOWN INDICATION
     Route: 065
  7. GLICAZIDE [Suspect]
     Indication: DIABETES MELLITUS
     Route: 048
  8. COMBIVIR [Concomitant]
     Indication: HIV INFECTION
     Route: 048
  9. VIREAD [Concomitant]
     Indication: HIV INFECTION
     Route: 048
  10. FUZEON [Concomitant]
     Indication: HIV INFECTION
     Route: 058
  11. COTRIM [Concomitant]
     Indication: PROPHYLAXIS
     Route: 048
  12. FLUCONAZOLE [Concomitant]
     Indication: PROPHYLAXIS
     Route: 048

REACTIONS (1)
  - ALANINE AMINOTRANSFERASE INCREASED [None]
